FAERS Safety Report 18663225 (Version 1)
Quarter: 2020Q4

REPORT INFORMATION
  Report Type: Spontaneous
  Country: DE (occurrence: TW)
  Receive Date: 20201224
  Receipt Date: 20201224
  Transmission Date: 20210114
  Serious: Yes (Other)
  Sender: FDA-Public Use
  Company Number: TW-ELI_LILLY_AND_COMPANY-TW202012011896

PATIENT
  Age: 47 Year
  Sex: Male
  Weight: 59 kg

DRUGS (5)
  1. OPDIVO [Concomitant]
     Active Substance: NIVOLUMAB
     Indication: TONGUE CANCER METASTATIC
     Dosage: 100 MG, UNK
     Route: 041
     Dates: start: 20181204
  2. ERBITUX [Suspect]
     Active Substance: CETUXIMAB
     Indication: TONGUE CANCER METASTATIC
     Dosage: 600 MG, UNK
     Route: 041
     Dates: start: 20181204, end: 20190731
  3. KEMOPLAT [Concomitant]
     Active Substance: CISPLATIN
     Indication: TONGUE CANCER METASTATIC
     Dosage: 117 MG, UNK
     Route: 041
     Dates: start: 20180301
  4. KEMOPLAT [Concomitant]
     Active Substance: CISPLATIN
     Dosage: 80 MG, UNK
     Route: 041
     Dates: start: 20181204
  5. 5 FU [Concomitant]
     Active Substance: FLUOROURACIL
     Indication: TONGUE CANCER METASTATIC
     Dosage: 800 MG, UNK
     Route: 041
     Dates: start: 20181204

REACTIONS (16)
  - Neutropenia [Unknown]
  - Leukopenia [Unknown]
  - Decreased appetite [Unknown]
  - Anaemia [Unknown]
  - Pruritus [Unknown]
  - Rash [Unknown]
  - Fatigue [Unknown]
  - Alopecia [Unknown]
  - Nausea [Unknown]
  - Dermatitis acneiform [Unknown]
  - Palmar-plantar erythrodysaesthesia syndrome [Unknown]
  - Stomatitis [Unknown]
  - Neuropathy peripheral [Unknown]
  - Blood creatinine increased [Unknown]
  - Thrombocytopenia [Unknown]
  - Vomiting [Unknown]

NARRATIVE: CASE EVENT DATE: 20181225
